FAERS Safety Report 6618134-X (Version None)
Quarter: 2010Q1

REPORT INFORMATION
  Report Type: 
  Country: None (occurrence: None)
  Receive Date: 20100308
  Receipt Date: 20100226
  Transmission Date: 20100710
  Serious: Yes (Death)
  Sender: FDA-Public Use
  Company Number: GB-AMGEN-US392547

PATIENT
  Sex: Male

DRUGS (1)
  1. ENBREL [Suspect]
     Indication: PSORIASIS
     Route: 058
     Dates: start: 20080303, end: 20091105

REACTIONS (2)
  - LOWER RESPIRATORY TRACT INFECTION [None]
  - LUNG NEOPLASM MALIGNANT [None]
